FAERS Safety Report 6520087-X (Version None)
Quarter: 2009Q4

REPORT INFORMATION
  Report Type: 
  Country: None (occurrence: None)
  Receive Date: 20091229
  Receipt Date: 20091216
  Transmission Date: 20100525
  Serious: Yes (Other)
  Sender: FDA-Public Use
  Company Number: PHBS2007JP18063

PATIENT
  Age: 70 Year
  Sex: Female

DRUGS (4)
  1. AREDIA [Suspect]
     Indication: METASTASES TO BONE
     Dosage: UNK, UNK
     Route: 042
  2. ZOMETA [Suspect]
     Indication: METASTASES TO BONE
  3. BISPHONAL [Suspect]
     Indication: METASTASES TO BONE
     Dosage: UNK
  4. ANTI-CANCER DRUG [Concomitant]

REACTIONS (4)
  - BONE SWELLING [None]
  - GINGIVAL BLEEDING [None]
  - OSTEONECROSIS [None]
  - PAIN IN JAW [None]
